FAERS Safety Report 4827127-4 (Version None)
Quarter: 2005Q4

REPORT INFORMATION
  Report Type: 
  Country: None (occurrence: None)
  Receive Date: 20051014
  Receipt Date: 20050627
  Transmission Date: 20060501
  Serious: No
  Sender: FDA-Public Use
  Company Number: 2005SP001621

PATIENT
  Age: 34 Year
  Sex: Female
  Weight: 54.4316 kg

DRUGS (2)
  1. LUNESTA [Suspect]
     Dosage: 2 MG; ORAL; SEE IMAGE
     Route: 048
     Dates: start: 20050606, end: 20050601
  2. LUNESTA [Suspect]
     Dosage: 2 MG; ORAL; SEE IMAGE
     Route: 048
     Dates: start: 20050601, end: 20050624

REACTIONS (11)
  - ABDOMINAL PAIN [None]
  - ARTHRALGIA [None]
  - DIARRHOEA [None]
  - DRUG INEFFECTIVE [None]
  - GASTROOESOPHAGEAL REFLUX DISEASE [None]
  - INSOMNIA [None]
  - MIGRAINE [None]
  - MOOD ALTERED [None]
  - OEDEMA PERIPHERAL [None]
  - PERIORBITAL HAEMATOMA [None]
  - VOMITING [None]
